FAERS Safety Report 5532285-2 (Version None)
Quarter: 2007Q4

REPORT INFORMATION
  Report Type: 
  Country: None (occurrence: None)
  Receive Date: 20071203
  Receipt Date: 20071121
  Transmission Date: 20080405
  Serious: Yes (Other)
  Sender: FDA-Public Use
  Company Number: US-ELI_LILLY_AND_COMPANY-US200709001514

PATIENT
  Age: 60 Year
  Sex: Female
  Weight: 79.819 kg

DRUGS (10)
  1. FORTEO [Suspect]
     Indication: OSTEOPOROSIS
     Dosage: 20 UG, DAILY (1/D)
     Dates: start: 20070101
  2. ASPIRIN [Concomitant]
  3. CALCIUM [Concomitant]
  4. NEXIUM [Concomitant]
  5. CENTRUM SILVER [Concomitant]
  6. ZOCOR [Concomitant]
  7. VICODIN [Concomitant]
  8. PERCOCET [Concomitant]
  9. IBUPROFEN [Concomitant]
  10. ULTRAM [Concomitant]

REACTIONS (1)
  - ROTATOR CUFF SYNDROME [None]
